FAERS Safety Report 5401831-1 (Version None)
Quarter: 2007Q3

REPORT INFORMATION
  Report Type: 
  Country: None (occurrence: None)
  Receive Date: 20070726
  Receipt Date: 20070719
  Transmission Date: 20080115
  Serious: Yes (Death, Other)
  Sender: FDA-Public Use
  Company Number: 2007SP014085

PATIENT
  Age: 70 Year
  Sex: Male

DRUGS (63)
  1. BETAMETHASONE / GENTAMYCIN [Suspect]
     Indication: RASH
     Dates: start: 20060918
  2. FLUMARIN (FLOMOXEF SODIUM) [Suspect]
     Indication: INFECTION
     Dosage: 2 GM; ; IV
     Route: 042
     Dates: start: 20060917, end: 20060917
  3. DORIBAX [Suspect]
     Indication: INFECTION
     Dosage: 0.5 GM; QD; IV
     Route: 042
     Dates: start: 20060919, end: 20060920
  4. PHENOBARBITAL TAB [Suspect]
     Indication: CONVULSION
     Dosage: 100 MG; QD; PO
     Route: 048
     Dates: start: 20060828, end: 20060923
  5. SPELEAR (FUDOSTEINE) [Suspect]
     Indication: SPUTUM RETENTION
     Dosage: 1200 MG; QD; PO
     Route: 048
     Dates: start: 20060914, end: 20060924
  6. TEGRETOL [Suspect]
     Indication: WOUND COMPLICATION
     Dosage: 100 MG; QD; PO
     Route: 048
     Dates: start: 20060922, end: 20060923
  7. LOXONIN (LOXOPROFEN) [Suspect]
     Indication: INTERCOSTAL NEURALGIA
     Dosage: 180 MG; QD; PO, 180 MG; QD; PO
     Route: 048
     Dates: start: 20060918, end: 20060920
  8. LOXONIN (LOXOPROFEN) [Suspect]
     Indication: INTERCOSTAL NEURALGIA
     Dosage: 180 MG; QD; PO, 180 MG; QD; PO
     Route: 048
     Dates: start: 20060923, end: 20060924
  9. MAGMITT [Concomitant]
  10. CERCINE [Concomitant]
  11. AMOBAN [Concomitant]
  12. MYSLEE [Concomitant]
  13. ROHYPNOL [Concomitant]
  14. UBRETID [Concomitant]
  15. SELBEX [Concomitant]
  16. SENNOSIDE [Concomitant]
  17. LANSOPRAZOLE [Concomitant]
  18. NAPROXEN [Concomitant]
  19. BAYASPIRIN [Concomitant]
  20. POLARAMINE [Concomitant]
  21. MOBIC [Concomitant]
  22. DISTILLED WATER [Concomitant]
  23. VOLTAREN [Concomitant]
  24. VOLTAREN [Concomitant]
  25. KETOPROFEN [Concomitant]
  26. LAXOBERON [Concomitant]
  27. WAKOBITAL [Concomitant]
  28. ALBUMIN (HUMAN) [Concomitant]
  29. HUMULIN 70/30 [Concomitant]
  30. ANAPEINE (ROPIVACAINE) [Concomitant]
  31. AMINOTRIPA 1 [Concomitant]
  32. AMINOTRIPA 2 [Concomitant]
  33. AMINOFLUID [Concomitant]
  34. OMEPRAZOLE [Concomitant]
  35. CATACLOT [Concomitant]
  36. SOL MEDROL [Concomitant]
  37. SOLDEM 3A [Concomitant]
  38. MULTIVITAMIN ADDITIVE [Concomitant]
  39. NOVO HEPARIN [Concomitant]
  40. UNKNOWN [Concomitant]
  41. PANSPORIN [Concomitant]
  42. PERDIPINE [Concomitant]
  43. POTACOL-R [Concomitant]
  44. RADICUT [Concomitant]
  45. STRONGER NEO MINOPHAGEN [Concomitant]
  46. STRONGER NEO MINOPHAGEN [Concomitant]
  47. LOW-MOLECULAR DEXTRAN L [Concomitant]
  48. BISOLVON [Concomitant]
  49. BISOLVON [Concomitant]
  50. AMOBAN [Concomitant]
  51. AMOBAN [Concomitant]
  52. AMOBAN [Concomitant]
  53. MYSLEE [Concomitant]
  54. MYSLEE [Concomitant]
  55. ROHYPNOL [Concomitant]
  56. ROHYPNOL [Concomitant]
  57. ROHYPNOL [Concomitant]
  58. LANSOPRAZOLE [Concomitant]
  59. VOLTAREN [Concomitant]
  60. VOLTAREN [Concomitant]
  61. VOLTAREN [Concomitant]
  62. POTACOL-R [Concomitant]
  63. UNKNOWN [Concomitant]

REACTIONS (13)
  - ALANINE AMINOTRANSFERASE INCREASED [None]
  - ASPARTATE AMINOTRANSFERASE INCREASED [None]
  - BLOOD BILIRUBIN INCREASED [None]
  - CARDIAC ARREST [None]
  - CONTINUOUS HAEMODIAFILTRATION [None]
  - LIVER DISORDER [None]
  - PLATELET COUNT DECREASED [None]
  - PLEURAL EFFUSION [None]
  - PNEUMONIA [None]
  - SHOCK [None]
  - STAPHYLOCOCCAL SEPSIS [None]
  - STEVENS-JOHNSON SYNDROME [None]
  - WHITE BLOOD CELL COUNT DECREASED [None]
